FAERS Safety Report 13177327 (Version 1)
Quarter: 2017Q1

REPORT INFORMATION
  Report Type: Report from Study
  Country: US (occurrence: US)
  Receive Date: 20170201
  Receipt Date: 20170201
  Transmission Date: 20170428
  Serious: Yes (Other)
  Sender: FDA-Public Use
  Company Number: US-EXELIXIS-CABO-16005937

PATIENT
  Age: 66 Year
  Sex: Female

DRUGS (3)
  1. COMETRIQ [Suspect]
     Active Substance: CABOZANTINIB S-MALATE
     Dosage: 60 MG QD, ONE WEEK ON, ONE WEEK OFF
     Route: 048
     Dates: start: 201603, end: 20160627
  2. COMETRIQ [Suspect]
     Active Substance: CABOZANTINIB S-MALATE
     Dosage: 80 MG, QD
     Route: 048
     Dates: start: 20160105, end: 20160301
  3. COMETRIQ [Suspect]
     Active Substance: CABOZANTINIB S-MALATE
     Indication: THYROID CANCER
     Dosage: 140 MG, QD
     Route: 048
     Dates: start: 20151114, end: 201512

REACTIONS (9)
  - Blister [Unknown]
  - Musculoskeletal pain [Unknown]
  - Tympanic membrane perforation [Unknown]
  - Angiopathy [Unknown]
  - Neck pain [Unknown]
  - Ear infection [Unknown]
  - Hypertension [Unknown]
  - Hypoacusis [Unknown]
  - Skin ulcer [Unknown]

NARRATIVE: CASE EVENT DATE: 20160627
